FAERS Safety Report 10365640 (Version 2)
Quarter: 2014Q3

REPORT INFORMATION
  Report Type: Spontaneous
  Country: IT (occurrence: None)
  Receive Date: 20140804
  Receipt Date: 20140828
  Transmission Date: 20150326
  Serious: Yes (Hospitalization)
  Sender: FDA-Public Use
  Company Number: 2462195

PATIENT
  Age: 70 Year
  Sex: Female

DRUGS (6)
  1. TENORMIN /00072502/ [Concomitant]
  2. RANITIDINE [Concomitant]
     Active Substance: RANITIDINE\RANITIDINE HYDROCHLORIDE
  3. CARBOPLATIN. [Suspect]
     Active Substance: CARBOPLATIN
     Indication: OVARIAN CANCER
     Dosage: 390 MG MILLIGRAM(S), CYCLICAL, INTRAVENOUS (NOT OTHERWISE SPECIFIED)
     Route: 042
     Dates: start: 20140513, end: 20140715
  4. ONDANSETRON [Concomitant]
     Active Substance: ONDANSETRON
  5. TRIMETON [Concomitant]
     Active Substance: CHLORPHENIRAMINE MALEATE
  6. PACLITAXEL. [Concomitant]
     Active Substance: PACLITAXEL

REACTIONS (5)
  - Hypotension [None]
  - Syncope [None]
  - Hypersensitivity [None]
  - Sopor [None]
  - Infusion related reaction [None]

NARRATIVE: CASE EVENT DATE: 20140715
